FAERS Safety Report 25527931 (Version 1)
Quarter: 2025Q3

REPORT INFORMATION
  Report Type: Spontaneous
  Country: JP (occurrence: JP)
  Receive Date: 20250708
  Receipt Date: 20250708
  Transmission Date: 20251020
  Serious: Yes (Hospitalization)
  Sender: MERCK SHARP & DOHME LLC
  Company Number: JP-009507513-2298890

PATIENT
  Age: 56 Year
  Sex: Female

DRUGS (1)
  1. CUBICIN [Suspect]
     Active Substance: DAPTOMYCIN
     Indication: Endocarditis
     Dosage: 8-10MG/KG
     Route: 041
     Dates: start: 20250530, end: 20250617

REACTIONS (2)
  - Eosinophilic pneumonia [Recovered/Resolved]
  - Increased dose administered [Unknown]

NARRATIVE: CASE EVENT DATE: 20250101
